FAERS Safety Report 19585624 (Version 1)
Quarter: 2021Q3

REPORT INFORMATION
  Report Type: Spontaneous
  Country: JP (occurrence: JP)
  Receive Date: 20210721
  Receipt Date: 20210721
  Transmission Date: 20211014
  Serious: Yes (Other)
  Sender: FDA-Public Use
  Company Number: JP-UNITED THERAPEUTICS-UNT-2018-007330

PATIENT
  Age: 40 Year
  Sex: Female
  Weight: 51 kg

DRUGS (20)
  1. REMODULIN [Suspect]
     Active Substance: TREPROSTINIL
     Dosage: 0.099 ?G/KG, CONTINUING
     Route: 058
     Dates: start: 20200713, end: 20210116
  2. PYDOXAL [Concomitant]
     Active Substance: PYRIDOXAL
     Indication: VITAMIN B6 DEFICIENCY
  3. PLAVIX [Concomitant]
     Active Substance: CLOPIDOGREL BISULFATE
     Indication: PROPHYLAXIS
     Dosage: UNK
     Route: 048
     Dates: start: 20191111, end: 20200524
  4. REMODULIN [Suspect]
     Active Substance: TREPROSTINIL
     Indication: PULMONARY ARTERIAL HYPERTENSION
     Dosage: 0.003 ?G/KG, CONTINUING
     Route: 058
     Dates: start: 20170412, end: 2017
  5. CRAVIT [Concomitant]
     Active Substance: LEVOFLOXACIN
     Indication: PROPHYLAXIS
     Dosage: 500 MG/DAY
     Route: 048
     Dates: start: 20170630, end: 20181231
  6. BAYASPIRIN [Concomitant]
     Active Substance: ASPIRIN
     Indication: PROPHYLAXIS
     Dosage: UNK
     Route: 048
     Dates: start: 20191113, end: 20200524
  7. REMODULIN [Suspect]
     Active Substance: TREPROSTINIL
     Dosage: 0.033 ?G/KG, CONTINUING
     Route: 058
     Dates: start: 2017, end: 2017
  8. ADEMPAS [Concomitant]
     Active Substance: RIOCIGUAT
     Indication: PULMONARY ARTERIAL HYPERTENSION
     Dosage: UNK
     Route: 048
     Dates: start: 201609
  9. PYRAMIDE [Concomitant]
     Active Substance: PYRAZINAMIDE
     Indication: PROPHYLAXIS
     Dosage: 1 GRAM/DAY
     Route: 048
     Dates: start: 20170630, end: 20181231
  10. BIOFERMIN [Concomitant]
     Active Substance: DIETARY SUPPLEMENT\PROBIOTICS
     Indication: PROPHYLAXIS
     Dosage: UNK
     Route: 048
  11. REMODULIN [Suspect]
     Active Substance: TREPROSTINIL
     Dosage: 0.1 ?G/KG, CONTINUING
     Route: 058
     Dates: start: 2017, end: 202007
  12. OPSUMIT [Concomitant]
     Active Substance: MACITENTAN
     Indication: PULMONARY ARTERIAL HYPERTENSION
     Dosage: UNK
     Route: 048
     Dates: start: 201608
  13. LOPEMIN [Concomitant]
     Indication: DIARRHOEA
     Dosage: UNK
     Route: 048
     Dates: end: 20201222
  14. ISCOTIN [Concomitant]
     Active Substance: ISONIAZID
     Indication: PROPHYLAXIS
     Dosage: 300 MG/DAY
     Route: 048
     Dates: start: 20170630, end: 20181231
  15. PYDOXAL [Concomitant]
     Active Substance: PYRIDOXAL
     Indication: PROPHYLAXIS
     Dosage: 30 MG
     Route: 048
     Dates: start: 20170630, end: 20181231
  16. LYRICA [Concomitant]
     Active Substance: PREGABALIN
     Indication: PROPHYLAXIS
     Dosage: UNK
     Route: 048
     Dates: end: 20201222
  17. FERROUS SULFATE. [Concomitant]
     Active Substance: FERROUS SULFATE
     Indication: PROPHYLAXIS
     Dosage: 210 MG, QD
     Route: 048
  18. REMODULIN [Suspect]
     Active Substance: TREPROSTINIL
     Dosage: 0.016 ?G/KG, CONTINUING
     Route: 058
     Dates: start: 2017, end: 2017
  19. PARIET [Concomitant]
     Active Substance: RABEPRAZOLE SODIUM
     Indication: PROPHYLAXIS
     Dosage: 10 MG, QD
     Route: 048
     Dates: start: 20170419
  20. ESANBUTOL [Concomitant]
     Active Substance: ETHAMBUTOL HYDROCHLORIDE
     Indication: PROPHYLAXIS
     Dosage: 750 MG/DAY
     Route: 048
     Dates: start: 20170630, end: 20181231

REACTIONS (8)
  - Injection site pain [Recovering/Resolving]
  - Urticaria [Recovering/Resolving]
  - Pulmonary tuberculosis [Recovered/Resolved]
  - Diarrhoea [Recovering/Resolving]
  - Lymphadenopathy [Recovering/Resolving]
  - Injection site swelling [Recovering/Resolving]
  - Injection site warmth [Recovering/Resolving]
  - Injection site erythema [Recovering/Resolving]

NARRATIVE: CASE EVENT DATE: 20170414
